FAERS Safety Report 21530837 (Version 1)
Quarter: 2022Q4

REPORT INFORMATION
  Report Type: Spontaneous
  Country: CA (occurrence: CA)
  Receive Date: 20221031
  Receipt Date: 20221031
  Transmission Date: 20230113
  Serious: Yes (Death, Hospitalization, Other)
  Sender: FDA-Public Use
  Company Number: CA-PFIZER INC-PV202200092495

PATIENT
  Age: 74 Year
  Sex: Male

DRUGS (3)
  1. LEUCOVORIN [Suspect]
     Active Substance: LEUCOVORIN
     Dosage: 1L FOLFOX
  2. OXALIPLATIN [Suspect]
     Active Substance: OXALIPLATIN
     Dosage: 1L FOLFOX
  3. FLUOROURACIL [Suspect]
     Active Substance: FLUOROURACIL
     Dosage: 1L FOLFOX

REACTIONS (4)
  - Death [Fatal]
  - Carcinoembryonic antigen increased [Unknown]
  - Blood bilirubin increased [Unknown]
  - Confusional state [Unknown]

NARRATIVE: CASE EVENT DATE: 20221022
